FAERS Safety Report 18975400 (Version 2)
Quarter: 2021Q1

REPORT INFORMATION
  Report Type: Spontaneous
  Country: US (occurrence: US)
  Receive Date: 20210305
  Receipt Date: 20210324
  Transmission Date: 20210420
  Serious: Yes (Other)
  Sender: FDA-Public Use
  Company Number: US-BAYER-2021-089569

PATIENT
  Age: 69 Year
  Sex: Female

DRUGS (4)
  1. PARACETAMOL [Concomitant]
     Active Substance: ACETAMINOPHEN
  2. VITAMIN D [VITAMIN D NOS] [Concomitant]
     Active Substance: VITAMIN D NOS
  3. ESTRADIOL. [Suspect]
     Active Substance: ESTRADIOL
     Route: 062
  4. DIPHENHYDRAMINE HYDROCHLORIDE. [Concomitant]
     Active Substance: DIPHENHYDRAMINE HYDROCHLORIDE

REACTIONS (7)
  - Muscle rupture [None]
  - Application site erythema [None]
  - Product physical issue [None]
  - Cerebrovascular accident [None]
  - Arthralgia [None]
  - Dyspnoea [None]
  - Pain [None]
